FAERS Safety Report 17421494 (Version 2)
Quarter: 2020Q1

REPORT INFORMATION
  Report Type: Spontaneous
  Country: US (occurrence: US)
  Receive Date: 20200214
  Receipt Date: 20200311
  Transmission Date: 20200409
  Serious: Yes (Hospitalization)
  Sender: FDA-Public Use
  Company Number: US-JNJFOC-20200213708

PATIENT
  Age: 78 Year
  Sex: Male
  Weight: 69.92 kg

DRUGS (2)
  1. XARELTO [Suspect]
     Active Substance: RIVAROXABAN
     Indication: THROMBOSIS PROPHYLAXIS
  2. XARELTO [Suspect]
     Active Substance: RIVAROXABAN
     Indication: KNEE ARTHROPLASTY
     Route: 048
     Dates: start: 20200108, end: 20200114

REACTIONS (2)
  - Post procedural haemorrhage [Unknown]
  - Yellow skin [Unknown]

NARRATIVE: CASE EVENT DATE: 20200113
